FAERS Safety Report 6890605-0 (Version None)
Quarter: 2010Q3

REPORT INFORMATION
  Report Type: 
  Country: None (occurrence: None)
  Receive Date: 20100731
  Receipt Date: 20081223
  Transmission Date: 20110219
  Serious: No
  Sender: FDA-Public Use
  Company Number: US-PFIZER INC-2008159204

PATIENT
  Sex: Female
  Weight: 62.585 kg

DRUGS (8)
  1. LIPITOR [Suspect]
     Indication: BLOOD CHOLESTEROL
     Dates: end: 20081201
  2. MUSCLE RELAXANTS [Suspect]
     Dates: start: 20080101, end: 20080101
  3. ALL OTHER THERAPEUTIC PRODUCTS [Concomitant]
     Dosage: UNK
  4. NIFEDIPINE [Concomitant]
     Dosage: UNK
  5. NEXIUM [Concomitant]
     Indication: GASTROOESOPHAGEAL REFLUX DISEASE
     Dosage: UNK
  6. ACETYLSALICYLIC ACID [Concomitant]
     Dosage: UNK
  7. FISH OIL [Concomitant]
     Dosage: UNK
  8. CALCIUM WITH VITAMIN D [Concomitant]
     Dosage: UNK

REACTIONS (6)
  - BODY HEIGHT DECREASED [None]
  - GASTROOESOPHAGEAL REFLUX DISEASE [None]
  - INSOMNIA [None]
  - MUSCULAR WEAKNESS [None]
  - NERVE INJURY [None]
  - PAIN IN EXTREMITY [None]
